FAERS Safety Report 22533099 (Version 1)
Quarter: 2023Q2

REPORT INFORMATION
  Report Type: Spontaneous
  Country: US (occurrence: US)
  Receive Date: 20230607
  Receipt Date: 20230607
  Transmission Date: 20230722
  Serious: No
  Sender: FDA-Public Use
  Company Number: US-GALDERMA-US2023008182

PATIENT

DRUGS (10)
  1. PROACTIV MD ADAPALENE ACNE TREATMENT [Suspect]
     Active Substance: ADAPALENE
     Indication: Acne
     Dosage: 1 DOSAGE FORM, QD, PEA SIZED AMOUNT, EVERY NIGHT
     Route: 061
     Dates: start: 202304, end: 2023
  2. PROACTIV MD ADAPALENE ACNE TREATMENT [Suspect]
     Active Substance: ADAPALENE
     Indication: Seborrhoea
  3. PROACTIV CLEAR SKIN SPF 30 [Concomitant]
     Active Substance: AVOBENZONE\OCTISALATE\OCTOCRYLENE
     Indication: Acne
     Dosage: 1 DOSAGE FORM, PEA SIZED AMOUNT, 2 OR MORE TIMES A DAY
     Route: 061
     Dates: start: 202304, end: 2023
  4. PROACTIV CLEAR SKIN SPF 30 [Concomitant]
     Active Substance: AVOBENZONE\OCTISALATE\OCTOCRYLENE
     Indication: Seborrhoea
  5. Proactiv MD Ultra Gentle Cleanser [Concomitant]
     Indication: Acne
     Dosage: 1 DOSAGE FORM, PEA SIZED AMOUNT, 2 OR MORE TIMES A DAY
     Route: 061
     Dates: start: 202304, end: 2023
  6. Proactiv MD Ultra Gentle Cleanser [Concomitant]
     Indication: Seborrhoea
  7. Proactiv MD Ultra Hydrating Moisturizer [Concomitant]
     Indication: Acne
     Dosage: 1 DOSAGE FORM, PEA SIZED AMOUNT, 2 OR MORE TIMES A DAY
     Route: 061
     Dates: start: 202304
  8. Proactiv MD Ultra Hydrating Moisturizer [Concomitant]
     Indication: Seborrhoea
  9. Proactiv Post Acne Scar Gel [Concomitant]
     Indication: Acne
     Dosage: 1 DOSAGE FORM, PEA SIZED AMOUNT, 2 OR MORE TIMES A DAY
     Route: 061
     Dates: start: 202304, end: 2023
  10. Proactiv Post Acne Scar Gel [Concomitant]
     Indication: Seborrhoea

REACTIONS (2)
  - Acne [Recovering/Resolving]
  - Dry skin [Recovering/Resolving]

NARRATIVE: CASE EVENT DATE: 20230401
